FAERS Safety Report 4967648-7 (Version None)
Quarter: 2006Q2

REPORT INFORMATION
  Report Type: 
  Country: None (occurrence: None)
  Receive Date: 20060410
  Receipt Date: 20030605
  Transmission Date: 20061013
  Serious: Yes (Hospitalization, Disabling, Other)
  Sender: FDA-Public Use
  Company Number: US-MERCK-0306USA00857

PATIENT
  Age: 35 Year
  Sex: Female
  Weight: 100 kg

DRUGS (5)
  1. VIOXX [Suspect]
     Indication: PAIN IN EXTREMITY
     Route: 048
     Dates: end: 20011001
  2. VIOXX [Suspect]
     Route: 048
     Dates: start: 20010101, end: 20020611
  3. VIOXX [Suspect]
     Indication: NECK PAIN
     Route: 048
     Dates: end: 20011001
  4. VIOXX [Suspect]
     Route: 048
     Dates: start: 20010101, end: 20020611
  5. ZYRTEC [Concomitant]
     Route: 048

REACTIONS (32)
  - ADVERSE EVENT [None]
  - ANGINA UNSTABLE [None]
  - ANXIETY [None]
  - ARTHRALGIA [None]
  - BACK PAIN [None]
  - BLOOD PRESSURE INCREASED [None]
  - BRONCHITIS [None]
  - BRONCHITIS VIRAL [None]
  - CHEST DISCOMFORT [None]
  - CHEST PAIN [None]
  - FALL [None]
  - FATIGUE [None]
  - FOOT FRACTURE [None]
  - HEADACHE [None]
  - HEART RATE INCREASED [None]
  - HEPATIC STEATOSIS [None]
  - HYPERSENSITIVITY [None]
  - HYPERTENSION [None]
  - HYSTERECTOMY [None]
  - IMPAIRED HEALING [None]
  - MUSCLE SPASMS [None]
  - NECK PAIN [None]
  - NERVE COMPRESSION [None]
  - NEUROPATHY [None]
  - PHARYNGITIS [None]
  - PHARYNGOLARYNGEAL PAIN [None]
  - POSTOPERATIVE INFECTION [None]
  - RHINORRHOEA [None]
  - SHOULDER PAIN [None]
  - SWELLING [None]
  - UPPER RESPIRATORY TRACT INFECTION [None]
  - URINARY TRACT INFECTION [None]
